FAERS Safety Report 18963724 (Version 1)
Quarter: 2021Q1

REPORT INFORMATION
  Report Type: Spontaneous
  Country: JP (occurrence: JP)
  Receive Date: 20210303
  Receipt Date: 20210303
  Transmission Date: 20210420
  Serious: Yes (Other)
  Sender: FDA-Public Use
  Company Number: JP-ORGANON-O2103JPN000282

PATIENT
  Age: 80 Year
  Sex: Male

DRUGS (1)
  1. EZETIMIBE. [Suspect]
     Active Substance: EZETIMIBE
     Dosage: UNK
     Route: 048

REACTIONS (1)
  - Surgery [Unknown]
